FAERS Safety Report 23225454 (Version 1)
Quarter: 2023Q4

REPORT INFORMATION
  Report Type: Spontaneous
  Country: US (occurrence: US)
  Receive Date: 20231124
  Receipt Date: 20231124
  Transmission Date: 20240109
  Serious: Yes (Other)
  Sender: FDA-Public Use
  Company Number: US-APOTEX-2023AP016904

PATIENT
  Age: 67 Year
  Sex: Female

DRUGS (7)
  1. GEMCITABINE [Suspect]
     Active Substance: GEMCITABINE
     Indication: Cholangiocarcinoma
     Dosage: 1000 MILLIGRAM/SQ. METER ON DAYS 1 AND 8 OVER A 21-DAY CYCLE FOR 3 CYCLES
     Route: 042
  2. GEMCITABINE [Suspect]
     Active Substance: GEMCITABINE
     Dosage: 1000 MILLIGRAM/SQ. METER ON DAYS 1 AND 8 OVER A 21-DAY CYCLE FOR 2 CYCLES
     Route: 042
  3. CISPLATIN [Suspect]
     Active Substance: CISPLATIN
     Indication: Cholangiocarcinoma
     Dosage: 25 MILLIGRAM/SQ. METER ON DAYS 1 AND 8 OVER A 21-DAY CYCLE FOR 3 CYCLES
     Route: 042
  4. CISPLATIN [Suspect]
     Active Substance: CISPLATIN
     Dosage: 25 MILLIGRAM/SQ. METER ON DAYS 1 AND 8 OVER A 21-DAY CYCLE FOR 2 CYCLES
     Route: 042
  5. CAPECITABINE [Suspect]
     Active Substance: CAPECITABINE
     Indication: Cholangiocarcinoma
     Dosage: 1000 MILLIGRAM/SQ. METER, BID, 14 DAYS IN A 21-DAY CYCLE FOR 2 CYCLES
     Route: 048
  6. YTTRIUM CHLORIDE Y-90 [Suspect]
     Active Substance: YTTRIUM CHLORIDE Y-90
     Indication: Cholangiocarcinoma
     Dosage: 331 GY
     Route: 065
  7. YTTRIUM CHLORIDE Y-90 [Suspect]
     Active Substance: YTTRIUM CHLORIDE Y-90
     Dosage: 127 GY
     Route: 065

REACTIONS (4)
  - Ascites [Unknown]
  - Thrombocytopenia [Unknown]
  - Hypoalbuminaemia [Unknown]
  - Pruritus [Unknown]
